FAERS Safety Report 8171138-0 (Version None)
Quarter: 2012Q1

REPORT INFORMATION
  Report Type: 
  Country: None (occurrence: None)
  Receive Date: 20120228
  Receipt Date: 20111212
  Transmission Date: 20120608
  Serious: No
  Sender: FDA-Public Use
  Company Number: US-BRISTOL-MYERS SQUIBB COMPANY-15986391

PATIENT
  Age: 70 Year
  Sex: Male

DRUGS (6)
  1. ACTOS [Concomitant]
     Dosage: ACTOS 45MG 1/2 TAB A DAY
  2. GLIPIZIDE [Concomitant]
     Dosage: GLIPIZIDE XL 2 TABLETS A DAY TWO TIMES A DAY
  3. METFORMIN HCL [Concomitant]
  4. SIMVASTATIN [Concomitant]
  5. QUINAPRIL [Concomitant]
     Indication: BLOOD PRESSURE
  6. ONGLYZA [Suspect]
     Dosage: ONGLYZA TABS5MG,TOOK HALF A TABLET LAST NIGHT AT 9:30PM+ THIS MORG AT11AM TOOK 7MONTHS AGO

REACTIONS (6)
  - OESOPHAGITIS [None]
  - RETCHING [None]
  - DIZZINESS [None]
  - CONFUSIONAL STATE [None]
  - GASTRIC DISORDER [None]
  - HYPERHIDROSIS [None]
